FAERS Safety Report 4264130-X (Version None)
Quarter: 2004Q1

REPORT INFORMATION
  Report Type: 
  Country: None (occurrence: None)
  Receive Date: 20040106
  Receipt Date: 20040106
  Transmission Date: 20041129
  Serious: Yes (Hospitalization)
  Sender: FDA-Public Use
  Company Number: None

PATIENT
  Age: 57 Year
  Sex: Male
  Weight: 71 kg

DRUGS (1)
  1. ADENOSINE [Suspect]
     Indication: CARDIAC STRESS TEST
     Dosage: 57.3MG IV
     Route: 042
     Dates: start: 20030829

REACTIONS (7)
  - BLOOD PRESSURE DECREASED [None]
  - COUGH [None]
  - DYSPNOEA [None]
  - LOSS OF CONSCIOUSNESS [None]
  - NAUSEA [None]
  - PHARYNGOLARYNGEAL PAIN [None]
  - RASH [None]
